FAERS Safety Report 7169891-8 (Version None)
Quarter: 2010Q4

REPORT INFORMATION
  Report Type: 
  Country: None (occurrence: None)
  Receive Date: 20101206
  Receipt Date: 20101123
  Transmission Date: 20110411
  Serious: Yes (Hospitalization)
  Sender: FDA-Public Use
  Company Number: 2010MA000849

PATIENT
  Age: 41 Year
  Sex: Male

DRUGS (3)
  1. AMLODIPINE BESYLATE [Suspect]
     Indication: HYPERTENSION
     Dosage: 10 MG PO
     Route: 048
     Dates: start: 20100611, end: 20100623
  2. FELODIPINE [Concomitant]
  3. RAMIPRIL [Concomitant]

REACTIONS (1)
  - HEPATITIS INFECTIOUS MONONUCLEOSIS [None]
